FAERS Safety Report 19800453 (Version 2)
Quarter: 2021Q3

REPORT INFORMATION
  Report Type: Spontaneous
  Country: ES (occurrence: ES)
  Receive Date: 20210907
  Receipt Date: 20210923
  Transmission Date: 20211014
  Serious: Yes (Other)
  Sender: FDA-Public Use
  Company Number: ES-LUPIN PHARMACEUTICALS INC.-2021-16614

PATIENT
  Age: 58 Year
  Sex: Male

DRUGS (2)
  1. BUPIVACAINE. [Concomitant]
     Active Substance: BUPIVACAINE
     Indication: LUMBAR SPINAL STENOSIS
     Dosage: 5 MILLILITER
     Route: 008
  2. BETAMETHASONE. [Suspect]
     Active Substance: BETAMETHASONE
     Indication: LUMBAR SPINAL STENOSIS
     Dosage: 22.8 MILLIGRAM (4ML OF BETAMETHASONE INJECTION)
     Route: 008

REACTIONS (3)
  - Impaired quality of life [Unknown]
  - Hiccups [Recovered/Resolved]
  - Initial insomnia [Unknown]
